FAERS Safety Report 4958515-3 (Version None)
Quarter: 2006Q1

REPORT INFORMATION
  Report Type: 
  Country: None (occurrence: None)
  Receive Date: 20060127
  Receipt Date: 20050915
  Transmission Date: 20060701
  Serious: Yes (Death)
  Sender: FDA-Public Use
  Company Number: 2005-US-00097

PATIENT
  Age: 46 Year
  Sex: Male
  Weight: 131.5431 kg

DRUGS (2)
  1. CLOZAPINE [Suspect]
     Indication: SCHIZOPHRENIA
     Dosage: 300 MG, QHS, ORAL
     Route: 048
     Dates: start: 19981001, end: 20050628
  2. VALPROATE SODIUM [Concomitant]

REACTIONS (1)
  - INTENTIONAL DRUG MISUSE [None]
